FAERS Safety Report 5702893-4 (Version None)
Quarter: 2008Q2

REPORT INFORMATION
  Report Type: 
  Country: None (occurrence: None)
  Receive Date: 20080411
  Receipt Date: 20080403
  Transmission Date: 20081010
  Serious: Yes (Other)
  Sender: FDA-Public Use
  Company Number: US-MERCK-0804USA01333

PATIENT
  Age: 8 Year
  Sex: Male

DRUGS (1)
  1. SINGULAIR [Suspect]
     Indication: ASTHMA
     Route: 048
     Dates: start: 20050101, end: 20080330

REACTIONS (3)
  - ABNORMAL BEHAVIOUR [None]
  - HEADACHE [None]
  - SUICIDAL IDEATION [None]
